FAERS Safety Report 9096133 (Version 2)
Quarter: 2017Q4

REPORT INFORMATION
  Report Type: Spontaneous
  Country: FR (occurrence: FR)
  Receive Date: 20130207
  Receipt Date: 20171012
  Transmission Date: 20180321
  Serious: Yes (Life-Threatening, Hospitalization)
  Sender: FDA-Public Use
  Company Number: FR-BAYER-2013-014739

PATIENT
  Age: 28 Year
  Sex: Female

DRUGS (11)
  1. SODIUM BICARBONATE. [Concomitant]
     Active Substance: SODIUM BICARBONATE
     Indication: DRUG TOXICITY PROPHYLAXIS
     Dosage: 70 MMOL, UNK
  2. CYTARABINE. [Concomitant]
     Active Substance: CYTARABINE
     Indication: B-CELL LYMPHOMA
  3. SODIUM BICARBONATE. [Concomitant]
     Active Substance: SODIUM BICARBONATE
     Indication: DRUG TOXICITY PROPHYLAXIS
     Dosage: BEFORE INITIATING THE INFUSION
  4. VALACICLOVIR [Concomitant]
     Active Substance: VALACYCLOVIR HYDROCHLORIDE
     Indication: ANTIVIRAL PROPHYLAXIS
     Dosage: 500 MG, BID
  5. ETOPOSIDE [ETOPOSIDE] [Concomitant]
     Indication: B-CELL LYMPHOMA
  6. CIPROFLOXACIN. [Suspect]
     Active Substance: CIPROFLOXACIN
     Indication: ANTIBIOTIC THERAPY
     Dosage: 500 MG, BID
     Route: 048
  7. IFOSFAMIDE. [Concomitant]
     Active Substance: IFOSFAMIDE
     Indication: B-CELL LYMPHOMA
  8. CALCIUM FOLINATE [Concomitant]
     Active Substance: LEUCOVORIN CALCIUM
     Indication: DRUG TOXICITY PROPHYLAXIS
     Route: 042
  9. CEFOTAXIME [Concomitant]
     Active Substance: CEFOTAXIME SODIUM
     Indication: PYREXIA
     Dosage: 1 G, TID
     Route: 042
  10. CEFOTAXIME [Concomitant]
     Active Substance: CEFOTAXIME SODIUM
     Indication: CHILLS
  11. METHOTREXAT [METHOTREXATE] [Interacting]
     Active Substance: METHOTREXATE
     Indication: B-CELL LYMPHOMA
     Dosage: 3 G/M2

REACTIONS (7)
  - Drug clearance decreased [None]
  - Mucosal inflammation [None]
  - Pyrexia [None]
  - Diarrhoea [None]
  - Pancytopenia [None]
  - Skin necrosis [None]
  - Drug interaction [None]
